FAERS Safety Report 6908363-X (Version None)
Quarter: 2010Q3

REPORT INFORMATION
  Report Type: 
  Country: None (occurrence: None)
  Receive Date: 20100805
  Receipt Date: 20100730
  Transmission Date: 20110219
  Serious: Yes (Death)
  Sender: FDA-Public Use
  Company Number: US-CEPHALON-2010004054

PATIENT
  Age: 44 Year

DRUGS (8)
  1. PROVIGIL [Suspect]
     Route: 048
  2. LAMOTRIGINE [Suspect]
  3. QUETIAPINE [Suspect]
  4. DULOXETINE HYDROCHLORIDE [Suspect]
  5. LORAZEPAM [Suspect]
  6. VARDENAFIL [Suspect]
  7. THORAZINE [Suspect]
  8. TRAMADOL HYDROCHLORIDE [Suspect]

REACTIONS (1)
  - COMPLETED SUICIDE [None]
